FAERS Safety Report 10014564 (Version 1)
Quarter: 2014Q1

REPORT INFORMATION
  Report Type: Spontaneous
  Country: JP (occurrence: JP)
  Receive Date: 20140317
  Receipt Date: 20140317
  Transmission Date: 20141002
  Serious: Yes (Other)
  Sender: FDA-Public Use
  Company Number: JP-SA-2014SA031003

PATIENT
  Age: 26 Year
  Sex: Male

DRUGS (1)
  1. DELLEGRA [Suspect]
     Dosage: 2 TABLETS PER DAY
     Route: 048
     Dates: start: 20140226, end: 20140227

REACTIONS (2)
  - Tachycardia [Recovered/Resolved]
  - Tremor [Recovered/Resolved]
